FAERS Safety Report 15424975 (Version 1)
Quarter: 2018Q3

REPORT INFORMATION
  Report Type: Report from Study
  Country: ES (occurrence: ES)
  Receive Date: 20180925
  Receipt Date: 20180925
  Transmission Date: 20181010
  Serious: Yes (Hospitalization, Other)
  Sender: FDA-Public Use
  Company Number: ES-TEVA-2018-ES-958196

PATIENT
  Age: 73 Year
  Sex: Male
  Weight: 81.6 kg

DRUGS (14)
  1. AFLIBERCEPT [Suspect]
     Active Substance: AFLIBERCEPT
     Indication: COLORECTAL CANCER METASTATIC
     Route: 041
     Dates: start: 20150527, end: 20150527
  2. 5?FU [Suspect]
     Active Substance: FLUOROURACIL
     Route: 040
     Dates: start: 20150527, end: 20150617
  3. 5?FU [Suspect]
     Active Substance: FLUOROURACIL
     Indication: COLORECTAL CANCER METASTATIC
     Route: 041
     Dates: start: 20150527, end: 20150527
  4. ESOMEPRAZOL [Concomitant]
     Active Substance: ESOMEPRAZOLE
     Indication: PROPHYLAXIS
     Dosage: CICLO 1: 720 MGCICLO 2: 640MG
     Route: 065
     Dates: start: 20000101
  5. SITAGLIPTIN PHOSPHATE [Concomitant]
     Active Substance: SITAGLIPTIN PHOSPHATE
     Dosage: CICLO 1: 720 MGCICLO 2: 640MG
     Route: 065
     Dates: start: 20130101
  6. IRINOTECAN [Suspect]
     Active Substance: IRINOTECAN
     Dosage: CICLO 1: 320 MGCICLO 2: 290 MG
     Route: 041
     Dates: start: 20150527, end: 20150527
  7. 5?FU [Suspect]
     Active Substance: FLUOROURACIL
     Route: 041
     Dates: start: 20150617, end: 20150617
  8. LEUCOVORIN. [Suspect]
     Active Substance: LEUCOVORIN
     Indication: COLORECTAL CANCER METASTATIC
     Route: 041
     Dates: start: 20150617, end: 20150617
  9. LEUCOVORIN. [Suspect]
     Active Substance: LEUCOVORIN
     Dosage: CICLO 1: 720 MGCICLO 2: 640MG
     Route: 041
     Dates: start: 20150527, end: 20150617
  10. LYRICA [Concomitant]
     Active Substance: PREGABALIN
     Dosage: CICLO 1: 720 MGCICLO 2: 640MG
     Route: 065
     Dates: start: 20150526
  11. IRINOTECAN [Suspect]
     Active Substance: IRINOTECAN
     Indication: COLORECTAL CANCER METASTATIC
     Route: 041
     Dates: start: 20150617, end: 20150617
  12. AFLIBERCEPT [Suspect]
     Active Substance: AFLIBERCEPT
     Route: 041
     Dates: start: 20150617, end: 20150617
  13. 5?FU [Suspect]
     Active Substance: FLUOROURACIL
     Route: 040
     Dates: start: 20150617, end: 20150617
  14. ATORVASTATIN [Concomitant]
     Active Substance: ATORVASTATIN
     Dosage: CICLO 1: 720 MGCICLO 2: 640MG
     Route: 065
     Dates: start: 20000101

REACTIONS (3)
  - Abdominal pain [Recovered/Resolved]
  - Cholecystitis acute [Recovered/Resolved]
  - Delirium [Recovered/Resolved]

NARRATIVE: CASE EVENT DATE: 20150701
